FAERS Safety Report 4841652-1 (Version None)
Quarter: 2005Q4

REPORT INFORMATION
  Report Type: 
  Country: None (occurrence: None)
  Receive Date: 20051130
  Receipt Date: 20050915
  Transmission Date: 20060501
  Serious: No
  Sender: FDA-Public Use
  Company Number: US-GLAXOSMITHKLINE-A0574426A

PATIENT
  Age: 21 Year
  Sex: Female

DRUGS (3)
  1. WELLBUTRIN XL [Suspect]
     Indication: DEPRESSION
     Route: 048
  2. TETRACYCLINE [Concomitant]
  3. RETIN-A [Concomitant]

REACTIONS (2)
  - ACNE [None]
  - DRUG INEFFECTIVE [None]
